FAERS Safety Report 16236791 (Version 1)
Quarter: 2019Q2

REPORT INFORMATION
  Report Type: Spontaneous
  Country: DE (occurrence: DE)
  Receive Date: 20190425
  Receipt Date: 20190425
  Transmission Date: 20190711
  Serious: Yes (Hospitalization)
  Sender: FDA-Public Use
  Company Number: DE-ASTRAZENECA-2019SE60528

PATIENT
  Sex: Male
  Weight: 77 kg

DRUGS (1)
  1. METFORMIN/DAPAGLIFLOZIN [Suspect]
     Active Substance: DAPAGLIFLOZIN PROPANEDIOL\METFORMIN HYDROCHLORIDE
     Indication: TYPE 2 DIABETES MELLITUS
     Dosage: 1.0DF UNKNOWN
     Route: 048
     Dates: start: 201902, end: 201904

REACTIONS (4)
  - Dizziness [Recovering/Resolving]
  - Malaise [Recovering/Resolving]
  - Nausea [Recovering/Resolving]
  - Ketonuria [Recovering/Resolving]

NARRATIVE: CASE EVENT DATE: 20190331
